FAERS Safety Report 4763172-5 (Version None)
Quarter: 2005Q3

REPORT INFORMATION
  Report Type: 
  Country: None (occurrence: None)
  Receive Date: 20050907
  Receipt Date: 20050819
  Transmission Date: 20060218
  Serious: Yes (Hospitalization)
  Sender: FDA-Public Use
  Company Number: TRP_0328_2005

PATIENT
  Age: 47 Year
  Sex: Female

DRUGS (14)
  1. RIBASPHERE [Suspect]
     Indication: HEPATITIS C
     Dosage: 800 MG QDAY PO
     Route: 048
     Dates: start: 20050104, end: 20050805
  2. PEG-INTRON [Suspect]
     Indication: HEPATITIS C
     Dosage: 96 MCG QWK SC
     Route: 058
     Dates: start: 20050104, end: 20050805
  3. ATENOLOL [Concomitant]
  4. DOXEPIN HCL [Concomitant]
  5. DULCOLAX [Concomitant]
  6. ACETAMINOPHEN W/HYDROCODINE BITARTRATE [Concomitant]
  7. NPH INSULIN [Concomitant]
  8. MUCINEX [Concomitant]
  9. NOVOLIN N [Concomitant]
  10. PREDNISONE [Concomitant]
  11. PROMETHAZINE [Concomitant]
  12. PROTONIX [Concomitant]
  13. SPIRONOLACTONE [Concomitant]
  14. KLOR-CON [Concomitant]

REACTIONS (4)
  - CONSTIPATION [None]
  - HAEMORRHOIDS [None]
  - PNEUMONIA [None]
  - PROCTALGIA [None]
